FAERS Safety Report 10648181 (Version 1)
Quarter: 2014Q4

REPORT INFORMATION
  Report Type: Spontaneous
  Country: US (occurrence: None)
  Receive Date: 20141211
  Receipt Date: 20141211
  Transmission Date: 20150529
  Serious: Yes (Life-Threatening, Disabling, Other)
  Sender: FDA-Public Use
  Company Number: None

PATIENT
  Age: 39 Year
  Sex: Male
  Weight: 106.14 kg

DRUGS (1)
  1. TOPAMAX [Suspect]
     Active Substance: TOPIRAMATE
     Indication: PRODUCT USED FOR UNKNOWN INDICATION
     Dosage: AT END
     Route: 048
     Dates: start: 20111205, end: 20111223

REACTIONS (4)
  - Activities of daily living impaired [None]
  - Impaired driving ability [None]
  - Depression [None]
  - Cognitive disorder [None]

NARRATIVE: CASE EVENT DATE: 20111003
